FAERS Safety Report 4417760-6 (Version None)
Quarter: 2004Q3

REPORT INFORMATION
  Report Type: 
  Country: None (occurrence: None)
  Receive Date: 20040803
  Receipt Date: 20040719
  Transmission Date: 20050211
  Serious: Yes (Death)
  Sender: FDA-Public Use
  Company Number: 04P-056-0267504-00

PATIENT
  Sex: 0

DRUGS (1)
  1. DEPAKENE [Suspect]

REACTIONS (1)
  - DEATH [None]
